FAERS Safety Report 19744935 (Version 1)
Quarter: 2021Q3

REPORT INFORMATION
  Report Type: Spontaneous
  Country: US (occurrence: US)
  Receive Date: 20210823
  Receipt Date: 20210823
  Transmission Date: 20211014
  Serious: No
  Sender: FDA-Public Use
  Company Number: None

PATIENT

DRUGS (2)
  1. PEGFILGRASTRIM?ONPRO [Suspect]
     Active Substance: PEGFILGRASTIM
  2. INSULIN?OMNIPOD [Suspect]
     Active Substance: DEVICE

REACTIONS (2)
  - Emotional distress [None]
  - Circumstance or information capable of leading to medication error [None]
